FAERS Safety Report 4936871-X (Version None)
Quarter: 2006Q1

REPORT INFORMATION
  Report Type: 
  Country: None (occurrence: None)
  Receive Date: 20060307
  Receipt Date: 20050923
  Transmission Date: 20060701
  Serious: Yes (Hospitalization, Other)
  Sender: FDA-Public Use
  Company Number: US-MERCK-0509USA03596

PATIENT
  Age: 56 Year
  Sex: Female

DRUGS (1)
  1. VIOXX [Suspect]
     Route: 048

REACTIONS (16)
  - ACUTE MYOCARDIAL INFARCTION [None]
  - ARRHYTHMIA SUPRAVENTRICULAR [None]
  - CHEST DISCOMFORT [None]
  - CHEST PAIN [None]
  - CHRONIC OBSTRUCTIVE PULMONARY DISEASE [None]
  - DIABETES MELLITUS [None]
  - DYSLIPIDAEMIA [None]
  - DYSPEPSIA [None]
  - DYSPNOEA EXERTIONAL [None]
  - HYPERTENSION [None]
  - HYPOKALAEMIA [None]
  - LARYNGEAL CANCER [None]
  - LARYNGEAL DISORDER [None]
  - MYOCARDIAL ISCHAEMIA [None]
  - RENAL FAILURE [None]
  - TRACHEOSTOMY MALFUNCTION [None]
